FAERS Safety Report 6773650-5 (Version None)
Quarter: 2010Q2

REPORT INFORMATION
  Report Type: 
  Country: None (occurrence: None)
  Receive Date: 20100614
  Receipt Date: 20100505
  Transmission Date: 20101027
  Serious: Yes (Hospitalization, Other)
  Sender: FDA-Public Use
  Company Number: ALD1-PK-2010-0028

PATIENT
  Age: 28 Year
  Sex: Female

DRUGS (2)
  1. ALDOMET [Suspect]
     Indication: HYPERTENSION
     Dosage: 250 MG/BID PER ORAL
     Route: 048
  2. AMLODIPINE BESYLATE [Concomitant]

REACTIONS (10)
  - ALANINE AMINOTRANSFERASE INCREASED [None]
  - ASPARTATE AMINOTRANSFERASE INCREASED [None]
  - CAESAREAN SECTION [None]
  - DRUG EXPOSURE DURING PREGNANCY [None]
  - DRUG INEFFECTIVE [None]
  - GENERAL PHYSICAL HEALTH DETERIORATION [None]
  - HYDRONEPHROSIS [None]
  - OLIGOHYDRAMNIOS [None]
  - OVARIAN ENLARGEMENT [None]
  - POLYCYSTIC OVARIES [None]
